FAERS Safety Report 9809103 (Version 1)
Quarter: 2014Q1

REPORT INFORMATION
  Report Type: Spontaneous
  Country: US (occurrence: US)
  Receive Date: 20140110
  Receipt Date: 20140110
  Transmission Date: 20141002
  Serious: Yes (Death)
  Sender: FDA-Public Use
  Company Number: PHEH2014US000843

PATIENT
  Age: 72 Year
  Sex: Female
  Weight: 154 kg

DRUGS (2)
  1. AFINITOR [Suspect]
     Indication: BREAST CANCER
     Dosage: 10 MG, QD
     Route: 048
     Dates: start: 20131118, end: 20131213
  2. AFINITOR [Suspect]
     Dosage: 10 MG, UNK
     Route: 048

REACTIONS (3)
  - Malignant pleural effusion [Fatal]
  - Pneumonia aspiration [Fatal]
  - Stomatitis [Not Recovered/Not Resolved]
